FAERS Safety Report 7502565-X (Version None)
Quarter: 2011Q2

REPORT INFORMATION
  Report Type: 
  Country: None (occurrence: None)
  Receive Date: 20110525
  Receipt Date: 20110523
  Transmission Date: 20111010
  Serious: Yes (Life-Threatening, Hospitalization, Other)
  Sender: FDA-Public Use
  Company Number: BR-PFIZER INC-2011110407

PATIENT
  Age: 45 Year
  Sex: Male
  Weight: 98 kg

DRUGS (5)
  1. LONITEN [Suspect]
     Indication: BLOOD PRESSURE INCREASED
     Dosage: 10 MG, 1X/DAY
     Route: 048
  2. CLONIDINE HYDROCHLORIDE [Concomitant]
     Dosage: 0.150 MG
  3. ADALAT - SLOW RELEASE [Concomitant]
     Dosage: UNK
  4. PROPRANOLOL [Concomitant]
     Dosage: 40 MG, UNK
  5. HYDRALAZINE [Concomitant]
     Dosage: 25 MG, UNK

REACTIONS (3)
  - RENAL DISORDER [None]
  - BLOOD PRESSURE INCREASED [None]
  - MOUTH HAEMORRHAGE [None]
